FAERS Safety Report 5453967-7 (Version None)
Quarter: 2007Q3

REPORT INFORMATION
  Report Type: 
  Country: None (occurrence: None)
  Receive Date: 20070917
  Receipt Date: 20061212
  Transmission Date: 20080115
  Serious: Yes (Hospitalization)
  Sender: FDA-Public Use
  Company Number: US-ASTRAZENECA-2005UW13880

PATIENT
  Age: 6776 Day
  Sex: Male
  Weight: 67.7 kg

DRUGS (3)
  1. SEROQUEL [Suspect]
     Indication: ANXIETY
     Dosage: 25 MG TID + 100 MG HS
     Route: 048
  2. SEROQUEL [Suspect]
     Route: 048
     Dates: start: 20040423, end: 20040505
  3. ZYPREXA [Suspect]
     Dates: end: 20040505

REACTIONS (5)
  - ABDOMINAL PAIN [None]
  - CHEST PAIN [None]
  - CONVULSION [None]
  - DIABETES MELLITUS [None]
  - WEIGHT INCREASED [None]
